FAERS Safety Report 13739584 (Version 2)
Quarter: 2017Q3

REPORT INFORMATION
  Report Type: Spontaneous
  Country: US (occurrence: US)
  Receive Date: 20170711
  Receipt Date: 20170802
  Transmission Date: 20171127
  Serious: No
  Sender: FDA-Public Use
  Company Number: US-BAYER-2017-132345

PATIENT
  Age: 83 Year
  Sex: Male
  Weight: 74.97 kg

DRUGS (6)
  1. BABY ASPIRIN [Concomitant]
     Active Substance: ASPIRIN
     Indication: ALLERGIC RESPIRATORY SYMPTOM
     Route: 048
  2. CLARITIN [Suspect]
     Active Substance: LORATADINE
     Dosage: 1 REDITAB AFTER BREAKFAST
     Route: 048
     Dates: start: 20170710, end: 20170710
  3. PLAVIX [Concomitant]
     Active Substance: CLOPIDOGREL BISULFATE
  4. NIACIN. [Concomitant]
     Active Substance: NIACIN
  5. BABY ASPIRIN [Concomitant]
     Active Substance: ASPIRIN
     Indication: NASOPHARYNGITIS
  6. COREG [Concomitant]
     Active Substance: CARVEDILOL

REACTIONS (1)
  - Drug ineffective [Unknown]

NARRATIVE: CASE EVENT DATE: 20170710
